FAERS Safety Report 4539034-5 (Version None)
Quarter: 2004Q4

REPORT INFORMATION
  Report Type: 
  Country: None (occurrence: None)
  Receive Date: 20041222
  Receipt Date: 20041214
  Transmission Date: 20050328
  Serious: Yes (Other)
  Sender: FDA-Public Use
  Company Number: 2004111664

PATIENT
  Sex: Female
  Weight: 77.1115 kg

DRUGS (6)
  1. NICOTROL [Suspect]
     Indication: SMOKING CESSATION THERAPY
     Dosage: 12 TO 16 CARTRIDGES A DAY, INHALATION
     Route: 055
     Dates: start: 20020101
  2. LORATADINE [Concomitant]
  3. DYAZIDE [Concomitant]
  4. TOCOPHEROL CONCENTRATE CAP [Concomitant]
  5. HYDROCODONE (HYDROCODONE) [Concomitant]
  6. PAROXETINE HCL [Concomitant]

REACTIONS (6)
  - BRAIN NEOPLASM MALIGNANT [None]
  - DRUG DEPENDENCE [None]
  - INTERVERTEBRAL DISC PROTRUSION [None]
  - LUNG NEOPLASM MALIGNANT [None]
  - PHARMACEUTICAL PRODUCT COMPLAINT [None]
  - VISUAL DISTURBANCE [None]
